FAERS Safety Report 5623939-8 (Version None)
Quarter: 2008Q1

REPORT INFORMATION
  Report Type: 
  Country: None (occurrence: None)
  Receive Date: 20080207
  Receipt Date: 20080204
  Transmission Date: 20080703
  Serious: Yes (Hospitalization)
  Sender: FDA-Public Use
  Company Number: 2008-00622

PATIENT
  Age: 8 Year
  Sex: Female

DRUGS (1)
  1. TRELSTAR DEPOT [Suspect]
     Indication: PRECOCIOUS PUBERTY
     Dosage: 3 MG, 1 IN 28 DAYS, INTRAMUSCULAR
     Route: 030
     Dates: start: 20070901

REACTIONS (1)
  - DIPLOPIA [None]
